FAERS Safety Report 6620265-5 (Version None)
Quarter: 2010Q1

REPORT INFORMATION
  Report Type: 
  Country: None (occurrence: None)
  Receive Date: 20100223
  Receipt Date: 20091218
  Transmission Date: 20100710
  Serious: No
  Sender: FDA-Public Use
  Company Number: 003498

PATIENT
  Sex: Female
  Weight: 62.5 kg

DRUGS (3)
  1. CIMZIA [Suspect]
     Indication: CROHN'S DISEASE
     Dosage: 400 MG SQ SUBCUTANEOUS
     Route: 058
     Dates: start: 20091216
  2. PENTASA [Concomitant]
  3. ENTOCORT EC [Concomitant]

REACTIONS (2)
  - PAIN [None]
  - SENSATION OF HEAVINESS [None]
